FAERS Safety Report 24527536 (Version 1)
Quarter: 2024Q4

REPORT INFORMATION
  Report Type: Report from Study
  Country: CA (occurrence: CA)
  Receive Date: 20241021
  Receipt Date: 20241021
  Transmission Date: 20250114
  Serious: Yes (Other)
  Sender: ALEXION PHARMACEUTICALS
  Company Number: CA-AstraZeneca-CH-00727327A

PATIENT

DRUGS (10)
  1. FASENRA [Suspect]
     Active Substance: BENRALIZUMAB
  2. FASENRA [Suspect]
     Active Substance: BENRALIZUMAB
  3. FASENRA [Suspect]
     Active Substance: BENRALIZUMAB
  4. FASENRA [Suspect]
     Active Substance: BENRALIZUMAB
  5. BENRALIZUMAB [Suspect]
     Active Substance: BENRALIZUMAB
  6. BENRALIZUMAB [Suspect]
     Active Substance: BENRALIZUMAB
  7. ALVESCO [Suspect]
     Active Substance: CICLESONIDE
  8. ALVESCO [Suspect]
     Active Substance: CICLESONIDE
     Route: 065
  9. CORTEF [Concomitant]
     Active Substance: HYDROCORTISONE
  10. CORTEF [Concomitant]
     Active Substance: HYDROCORTISONE
     Route: 065

REACTIONS (1)
  - Thrombosis [Unknown]
